FAERS Safety Report 7775766-3 (Version None)
Quarter: 2011Q3

REPORT INFORMATION
  Report Type: 
  Country: None (occurrence: None)
  Receive Date: 20110923
  Receipt Date: 20110921
  Transmission Date: 20111222
  Serious: No
  Sender: FDA-Public Use
  Company Number: US-TEVA-301916USA

PATIENT
  Sex: Male

DRUGS (1)
  1. PROAIR HFA [Suspect]
     Indication: COUGH
     Route: 055
     Dates: start: 20110801

REACTIONS (1)
  - DRUG SCREEN POSITIVE [None]
